FAERS Safety Report 12530758 (Version 1)
Quarter: 2016Q3

REPORT INFORMATION
  Report Type: Spontaneous
  Country: JP (occurrence: JP)
  Receive Date: 20160706
  Receipt Date: 20160706
  Transmission Date: 20161109
  Serious: Yes (Other)
  Sender: FDA-Public Use
  Company Number: JP-PFIZER INC-2016325313

PATIENT
  Age: 56 Year
  Sex: Male

DRUGS (5)
  1. LOXOPROFEN [Concomitant]
     Active Substance: LOXOPROFEN
     Indication: INTERVERTEBRAL DISC PROTRUSION
     Dosage: 180 MG, DAILY
     Route: 048
     Dates: start: 20160608
  2. LYRICA [Suspect]
     Active Substance: PREGABALIN
     Dosage: 50 MG TWICE DAILY (MORNING AND NIGHT)
     Route: 048
     Dates: start: 20160608, end: 20160617
  3. REBAMIPIDE [Concomitant]
     Active Substance: REBAMIPIDE
     Dosage: UNK
     Route: 048
     Dates: start: 20160608
  4. LYRICA [Suspect]
     Active Substance: PREGABALIN
     Indication: NEURALGIA
     Dosage: 25 MG TWICE DAILY (MORNING AND NIGHT)
     Route: 048
     Dates: start: 20160528, end: 20160607
  5. LYRICA [Suspect]
     Active Substance: PREGABALIN
     Dosage: 150 MG TWICE DAILY
     Route: 048
     Dates: start: 20160618

REACTIONS (5)
  - Loss of consciousness [Recovered/Resolved]
  - Road traffic accident [Recovered/Resolved]
  - Insomnia [Unknown]
  - Somnolence [Recovered/Resolved]
  - Pain [Unknown]

NARRATIVE: CASE EVENT DATE: 20160618
